FAERS Safety Report 6642742-3 (Version None)
Quarter: 2010Q1

REPORT INFORMATION
  Report Type: 
  Country: None (occurrence: None)
  Receive Date: 20100319
  Receipt Date: 20100310
  Transmission Date: 20100710
  Serious: Yes (Other)
  Sender: FDA-Public Use
  Company Number: JP-PFIZER INC-2010025305

PATIENT
  Age: 95 Year
  Sex: Female

DRUGS (2)
  1. CADUET [Suspect]
     Dosage: UNK
     Route: 048
  2. NORVASC [Concomitant]

REACTIONS (1)
  - DEAFNESS [None]
